FAERS Safety Report 24574842 (Version 1)
Quarter: 2024Q4

REPORT INFORMATION
  Report Type: Spontaneous
  Country: DK (occurrence: DK)
  Receive Date: 20241104
  Receipt Date: 20241104
  Transmission Date: 20250114
  Serious: Yes (Other)
  Sender: UCB
  Company Number: DK-Desitin-2024-02556

PATIENT
  Sex: Male

DRUGS (19)
  1. LACOSAMIDE [Suspect]
     Active Substance: LACOSAMIDE
     Indication: Generalised tonic-clonic seizure
     Dosage: UNK
  2. LACOSAMIDE [Suspect]
     Active Substance: LACOSAMIDE
     Indication: Febrile convulsion
  3. LACOSAMIDE [Suspect]
     Active Substance: LACOSAMIDE
     Indication: Epilepsy
  4. LAMOTRIGINE [Suspect]
     Active Substance: LAMOTRIGINE
     Indication: Partial seizures
     Dosage: UNK
  5. VALPROIC ACID [Suspect]
     Active Substance: VALPROIC ACID
     Indication: Seizure
     Dosage: UNK
  6. ESLICARBAZEPINE [Suspect]
     Active Substance: ESLICARBAZEPINE
     Indication: Generalised tonic-clonic seizure
     Dosage: UNK
  7. ESLICARBAZEPINE [Suspect]
     Active Substance: ESLICARBAZEPINE
     Indication: Febrile convulsion
  8. ZONISAMIDE [Suspect]
     Active Substance: ZONISAMIDE
     Indication: Generalised tonic-clonic seizure
     Dosage: UNK
  9. ZONISAMIDE [Suspect]
     Active Substance: ZONISAMIDE
     Indication: Febrile convulsion
  10. VINPOCETINE [Concomitant]
     Active Substance: VINPOCETINE
     Indication: Generalised tonic-clonic seizure
     Dosage: THREE TIMES DAILY
  11. VINPOCETINE [Concomitant]
     Active Substance: VINPOCETINE
     Indication: Febrile convulsion
     Dosage: 20 MILLIGRAM
  12. METHYLPHENIDATE [Concomitant]
     Active Substance: METHYLPHENIDATE
     Indication: Attention deficit hyperactivity disorder
     Dosage: UNK
  13. BRIVARACETAM [Concomitant]
     Active Substance: BRIVARACETAM
     Indication: Generalised tonic-clonic seizure
  14. BRIVARACETAM [Concomitant]
     Active Substance: BRIVARACETAM
     Indication: Febrile convulsion
     Dosage: 235 MILLIGRAM, ONCE DAILY (QD)
  15. SERTRALINE [Concomitant]
     Active Substance: SERTRALINE HYDROCHLORIDE
     Indication: Product used for unknown indication
  16. ARIPIPRAZOLE [Concomitant]
     Active Substance: ARIPIPRAZOLE
     Indication: Autism spectrum disorder
  17. RISPERIDONE [Concomitant]
     Active Substance: RISPERIDONE
     Indication: Product used for unknown indication
  18. VALPROATE [Concomitant]
     Active Substance: VALPROIC ACID
     Indication: Generalised tonic-clonic seizure
  19. VALPROATE [Concomitant]
     Active Substance: VALPROIC ACID
     Indication: Febrile convulsion
     Dosage: 450 MILLIGRAM, ONCE DAILY (QD)

REACTIONS (3)
  - Aggression [Unknown]
  - Therapy non-responder [Unknown]
  - Tic [Unknown]
